FAERS Safety Report 8395328-7 (Version None)
Quarter: 2012Q1

REPORT INFORMATION
  Report Type: 
  Country: None (occurrence: None)
  Receive Date: 20120323
  Receipt Date: 20110725
  Transmission Date: 20120608
  Serious: Yes (Death, Hospitalization, Other)
  Sender: FDA-Public Use
  Company Number: 163-21880-11030284

PATIENT
  Age: 83 Year
  Sex: Male

DRUGS (32)
  1. AMLODIPINE [Concomitant]
  2. METFFORMIN HYDROCHLORIDE [Concomitant]
  3. DETROL LA [Concomitant]
  4. CALCIUM CITRATE (CALCIUM CITRATE) [Concomitant]
  5. ZOCOR [Concomitant]
  6. PLAQUENIL [Concomitant]
  7. AMBIEN [Concomitant]
  8. ACETAMINOPHEN [Concomitant]
  9. AMARYL [Concomitant]
  10. BLOOD (BLOOD AND RELATED PRODUCTS) (INJECTION) [Concomitant]
  11. INSULIN (NOVOLOG) (INSULIN ASPART) [Concomitant]
  12. COLACE (DOCUSATE SODIUM) [Concomitant]
  13. MAGNESIUM (MAGNESIUM) [Concomitant]
  14. REVLIMID [Suspect]
     Indication: MYELODYSPLASTIC SYNDROME
     Dosage: 10 MG, 1 IN 1 D, PO
     Route: 048
     Dates: start: 20110103, end: 20110214
  15. LISINOPRIL [Concomitant]
  16. SULFASALAZINE (SULFASALAZINE) (TABLETS) [Concomitant]
  17. ACTONEL [Concomitant]
  18. MULTIVITAMIN [Concomitant]
  19. PANTOPRAZOLE [Concomitant]
  20. ARTHROTEC [Concomitant]
  21. FOLIC ACID [Concomitant]
  22. SIMVASTATIN [Concomitant]
  23. VITAMIN D [Concomitant]
  24. LOVENOX [Concomitant]
  25. ZOFRAN [Concomitant]
  26. DUONEB (COMBIVENT) (INHALANT) [Concomitant]
  27. POTASSIUM CHLORIDE [Concomitant]
  28. ASPIRIN [Concomitant]
  29. LASIX [Concomitant]
  30. MAXZIDE [Concomitant]
  31. NOVOLOG [Concomitant]
  32. PHOSPHORUS (PHOSPHORUS) [Concomitant]

REACTIONS (3)
  - PNEUMONIA [None]
  - OXYGEN SATURATION DECREASED [None]
  - RASH [None]
